FAERS Safety Report 9830447 (Version 1)
Quarter: 2014Q1

REPORT INFORMATION
  Report Type: Spontaneous
  Country: US (occurrence: US)
  Receive Date: 20140120
  Receipt Date: 20140120
  Transmission Date: 20141002
  Serious: No
  Sender: FDA-Public Use
  Company Number: US-JNJFOC-20140104879

PATIENT
  Age: 21 Year
  Sex: Male
  Weight: 78.47 kg

DRUGS (1)
  1. INVEGA SUSTENNA [Suspect]
     Indication: SCHIZOPHRENIA
     Route: 030
     Dates: start: 2012

REACTIONS (2)
  - Drug dose omission [Unknown]
  - Schizophrenia [Not Recovered/Not Resolved]
